FAERS Safety Report 23899151 (Version 1)
Quarter: 2024Q2

REPORT INFORMATION
  Report Type: Spontaneous
  Country: GB (occurrence: GB)
  Receive Date: 20240526
  Receipt Date: 20240526
  Transmission Date: 20240715
  Serious: Yes (Other)
  Sender: FDA-Public Use
  Company Number: GB-MHRA-TPP15109495C5842974YC1715185206472

PATIENT
  Age: 79 Year
  Sex: Male
  Weight: 81 kg

DRUGS (11)
  1. RAMIPRIL [Suspect]
     Active Substance: RAMIPRIL
     Indication: Product used for unknown indication
     Dosage: UNK
     Route: 065
  2. CALCIUM CARBONATE [Concomitant]
     Active Substance: CALCIUM CARBONATE
     Indication: Product used for unknown indication
     Dosage: UNK,TAKE ONE 2-3 TIMES/DAY
     Route: 065
     Dates: start: 20230727, end: 20240426
  3. COCODAMOL [Concomitant]
     Active Substance: ACETAMINOPHEN\CODEINE PHOSPHATE
     Indication: Product used for unknown indication
     Dosage: UNK, TAKE 1 OR 2 4 TIMES/DAY AS REQUIRED
     Route: 065
     Dates: start: 20230727
  4. DOXAZOSIN [Concomitant]
     Active Substance: DOXAZOSIN MESYLATE
     Indication: Product used for unknown indication
     Dosage: 1 DOSAGE FORM, ONCE A DAY, TAKE ONE DAILY, ANNUAL BLOOD TEST
     Route: 065
     Dates: start: 20230727
  5. EZETIMIBE [Concomitant]
     Active Substance: EZETIMIBE
     Indication: Product used for unknown indication
     Dosage: 1 DOSAGE FORM, ONCE A DAY, TAKE ONE DAILY
     Route: 065
     Dates: start: 20230727
  6. HYLO FORTE [Concomitant]
     Indication: Product used for unknown indication
     Dosage: UNK,USE AS DIRECTED
     Route: 065
     Dates: start: 20240430
  7. LANSOPRAZOLE [Concomitant]
     Active Substance: LANSOPRAZOLE
     Indication: Product used for unknown indication
     Dosage: UNK, TAKE ONE EACH MORNING FOR STOMACH PROECTION AS ...
     Route: 065
     Dates: start: 20230727
  8. LISINOPRIL [Concomitant]
     Active Substance: LISINOPRIL
     Indication: Product used for unknown indication
     Dosage: 1 DOSAGE FORM, ONCE A DAY,TAKE ONE DAILY, ANNUAL BLOOD TEST
     Route: 065
     Dates: start: 20240430
  9. LOSARTAN [Concomitant]
     Active Substance: LOSARTAN
     Indication: Product used for unknown indication
     Dosage: 1 DOSAGE FORM, ONCE A DAY,TAKE ONE TABLET ONCE DAILY TO REDUCE BLOOD PRES...
     Route: 065
     Dates: start: 20240311, end: 20240430
  10. PREDNISOLONE [Concomitant]
     Active Substance: PREDNISOLONE
     Indication: Product used for unknown indication
     Dosage: UNK,USE AS DIRECTED BY RHEUMATOLOGY
     Route: 065
     Dates: start: 20230413
  11. SILDENAFIL [Concomitant]
     Active Substance: SILDENAFIL
     Indication: Product used for unknown indication
     Dosage: UNK,TAKE ONE DAILY AS RQUIRED
     Route: 065
     Dates: start: 20230727

REACTIONS (2)
  - Flushing [Recovered/Resolved]
  - Lip swelling [Recovered/Resolved]
